FAERS Safety Report 25512541 (Version 1)
Quarter: 2025Q3

REPORT INFORMATION
  Report Type: Spontaneous
  Country: US (occurrence: US)
  Receive Date: 20250703
  Receipt Date: 20250703
  Transmission Date: 20251020
  Serious: No
  Sender: RADIUS PHARM
  Company Number: US-RADIUS HEALTH INC.-2024US008281

PATIENT
  Sex: Female

DRUGS (1)
  1. TYMLOS [Suspect]
     Active Substance: ABALOPARATIDE
     Indication: Product used for unknown indication
     Route: 065

REACTIONS (11)
  - Pain [Unknown]
  - Arthralgia [Unknown]
  - Alopecia [Unknown]
  - Food craving [Unknown]
  - Pain in extremity [Unknown]
  - Gait disturbance [Unknown]
  - Bone pain [Unknown]
  - Muscle spasms [Unknown]
  - Insomnia [Unknown]
  - Feeling abnormal [Unknown]
  - Illness [Unknown]

NARRATIVE: CASE EVENT DATE: 20240101
